FAERS Safety Report 5021256-0 (Version None)
Quarter: 2006Q2

REPORT INFORMATION
  Report Type: 
  Country: None (occurrence: None)
  Receive Date: 20060605
  Receipt Date: 20060520
  Transmission Date: 20061013
  Serious: Yes (Other)
  Sender: FDA-Public Use
  Company Number: 163-C5013-06050766

PATIENT
  Age: 63 Year
  Sex: Female
  Weight: 58 kg

DRUGS (3)
  1. REVLIMID [Suspect]
     Indication: POLYCYTHAEMIA VERA
     Dosage: 10 MG, QD ON DAYS 1-28 CYCLE 1-6, ORAL
     Route: 048
     Dates: start: 20060406, end: 20060503
  2. PREDNISONE TAB [Suspect]
     Indication: POLYCYTHAEMIA VERA
     Dosage: 30 + 15 MG, QD ON DAYS 1-28 CYCLE 1 ONLY, ORAL- SEE IMAGE
     Route: 048
     Dates: start: 20060406, end: 20060503
  3. HYDREA [Concomitant]

REACTIONS (6)
  - CARDIOMEGALY [None]
  - OEDEMA PERIPHERAL [None]
  - PERICARDIAL EFFUSION [None]
  - PLEURAL EFFUSION [None]
  - PULMONARY OEDEMA [None]
  - WHITE BLOOD CELL COUNT INCREASED [None]
